FAERS Safety Report 14719488 (Version 5)
Quarter: 2021Q4

REPORT INFORMATION
  Report Type: Spontaneous
  Country: US (occurrence: US)
  Receive Date: 20180405
  Receipt Date: 20211230
  Transmission Date: 20220303
  Serious: Yes (Disabling, Other)
  Sender: FDA-Public Use
  Company Number: US-PFIZER INC-2017161988

PATIENT
  Age: 66 Year
  Sex: Female
  Weight: 68 kg

DRUGS (6)
  1. XELJANZ XR [Suspect]
     Active Substance: TOFACITINIB CITRATE
     Indication: Rheumatoid arthritis
     Dosage: 11 MG, DAILY
     Route: 048
     Dates: start: 20160604
  2. XELJANZ XR [Suspect]
     Active Substance: TOFACITINIB CITRATE
     Dosage: 11 MG, UNK
     Route: 048
     Dates: start: 20160901, end: 201610
  3. XELJANZ XR [Suspect]
     Active Substance: TOFACITINIB CITRATE
     Dosage: 11 MG, DAILY
     Route: 048
     Dates: start: 20170429
  4. XELJANZ XR [Suspect]
     Active Substance: TOFACITINIB CITRATE
     Dosage: 11 MG, 1X/DAY
     Route: 048
     Dates: end: 20180215
  5. XELJANZ XR [Suspect]
     Active Substance: TOFACITINIB CITRATE
     Dosage: 11 MG, 1X/DAY
     Route: 048
  6. MELOXICAM [Concomitant]
     Active Substance: MELOXICAM
     Indication: Analgesic therapy
     Dosage: 15 MG, 1X/DAY
     Route: 048
     Dates: start: 20180308

REACTIONS (5)
  - Arthralgia [Recovering/Resolving]
  - Condition aggravated [Recovering/Resolving]
  - Atrial fibrillation [Unknown]
  - Hip arthroplasty [Unknown]
  - Arthropathy [Recovered/Resolved with Sequelae]

NARRATIVE: CASE EVENT DATE: 20171201
